FAERS Safety Report 23838915 (Version 1)
Quarter: 2024Q2

REPORT INFORMATION
  Report Type: Report from Study
  Country: CN (occurrence: CN)
  Receive Date: 20240509
  Receipt Date: 20240509
  Transmission Date: 20240716
  Serious: No
  Sender: FDA-Public Use
  Company Number: CN-ROCHE-3549222

PATIENT
  Age: 80 Year
  Sex: Female

DRUGS (2)
  1. GAVRETO [Suspect]
     Active Substance: PRALSETINIB
     Indication: Lung neoplasm malignant
     Route: 048
     Dates: start: 20240103
  2. GAVRETO [Suspect]
     Active Substance: PRALSETINIB
     Route: 048
     Dates: start: 202401

REACTIONS (1)
  - Blood pressure increased [Recovering/Resolving]
